FAERS Safety Report 24079118 (Version 1)
Quarter: 2024Q3

REPORT INFORMATION
  Report Type: Spontaneous
  Country: US (occurrence: None)
  Receive Date: 20240710
  Receipt Date: 20240710
  Transmission Date: 20241017
  Serious: No
  Sender: Public
  Company Number: None

PATIENT
  Age: 76 Year
  Sex: Male

DRUGS (2)
  1. LENALIDOMIDE [Suspect]
     Active Substance: LENALIDOMIDE
     Indication: Plasma cell myeloma
     Dosage: 20MG QD ORAL?
     Route: 048
     Dates: start: 20240621
  2. VELCADE [Suspect]
     Active Substance: BORTEZOMIB

REACTIONS (2)
  - Platelet count decreased [None]
  - Therapy interrupted [None]

NARRATIVE: CASE EVENT DATE: 20240702
